FAERS Safety Report 9466510 (Version 1)
Quarter: 2013Q3

REPORT INFORMATION
  Report Type: Report from Study
  Country: US (occurrence: US)
  Receive Date: 20130820
  Receipt Date: 20130820
  Transmission Date: 20140515
  Serious: Yes (Hospitalization)
  Sender: FDA-Public Use
  Company Number: US-ACTELION-A-NJ2013-87110

PATIENT
  Age: 66 Year
  Sex: Female

DRUGS (17)
  1. TRACLEER [Suspect]
     Indication: PULMONARY ARTERIAL HYPERTENSION
     Dosage: 125 MG, BID
     Route: 048
     Dates: start: 2011
  2. POTASSIUM [Concomitant]
     Dosage: UNK MEQ, QD
     Dates: start: 20080101
  3. ZANTAC [Concomitant]
     Dosage: 300 MG, BID
     Dates: start: 2008
  4. REVATIO [Concomitant]
     Dosage: 20 MG, TID
     Dates: start: 2008
  5. TIZANIDINE [Concomitant]
     Dosage: 4 MG, QID
     Dates: start: 2008
  6. ASPIRIN [Concomitant]
     Dosage: 81 MG, UNK
     Dates: start: 2008
  7. CALCIUM [Concomitant]
     Dosage: 500 MG, BID
     Dates: start: 2008
  8. CARBAMAZEPINE [Concomitant]
     Dosage: 200 MG, TID
     Dates: start: 2008
  9. NEURONTIN [Concomitant]
     Dosage: 600 MG, BID
     Dates: start: 2008
  10. LOSARTAN [Concomitant]
     Dosage: 50 MG, QD
     Dates: start: 2008
  11. SINGULAIR [Concomitant]
     Dosage: 10 MG, QD
     Dates: start: 2008
  12. TAMSULOSIN [Concomitant]
     Dosage: 0.4 MG, QD
     Dates: start: 2008
  13. LEVOTHYROXINE [Concomitant]
     Dosage: 0.175 MCG, QD
     Dates: start: 2008
  14. LASIX [Concomitant]
     Dosage: 20 MG, BID
     Dates: start: 2008
  15. NAPROSYN [Concomitant]
     Dosage: 250 MG, BID
     Dates: start: 2008
  16. FLUTICASONE [Concomitant]
     Dosage: 50 MG, UNK
     Route: 045
     Dates: start: 2008
  17. QVAR [Concomitant]
     Dosage: 80 MCG, BID
     Dates: start: 2008

REACTIONS (3)
  - Electrolyte imbalance [Recovering/Resolving]
  - Blood sodium decreased [Recovering/Resolving]
  - Weight increased [Recovered/Resolved]
